FAERS Safety Report 20959828 (Version 1)
Quarter: 2022Q2

REPORT INFORMATION
  Report Type: Spontaneous
  Country: DK (occurrence: DK)
  Receive Date: 20220614
  Receipt Date: 20220614
  Transmission Date: 20220721
  Serious: Yes (Hospitalization)
  Sender: FDA-Public Use
  Company Number: DK-STRIDES ARCOLAB LIMITED-2022SP007020

PATIENT
  Age: 3 Decade
  Sex: Male

DRUGS (14)
  1. MORPHINE SULFATE [Interacting]
     Active Substance: MORPHINE SULFATE
     Indication: Musculoskeletal pain
     Dosage: 20 MILLIGRAM DAILY, INCREASED TO 167.5MG DAILY
     Route: 065
  2. MORPHINE SULFATE [Interacting]
     Active Substance: MORPHINE SULFATE
     Dosage: 167.5 MILLIGRAM DAILY
     Route: 065
  3. MORPHINE SULFATE [Interacting]
     Active Substance: MORPHINE SULFATE
     Dosage: UNK, DOSE REDUCED
     Route: 065
  4. MYCOPHENOLATE MOFETIL [Suspect]
     Active Substance: MYCOPHENOLATE MOFETIL
     Indication: Anti-neutrophil cytoplasmic antibody positive vasculitis
     Dosage: UNK
     Route: 065
  5. MYCOPHENOLATE MOFETIL [Suspect]
     Active Substance: MYCOPHENOLATE MOFETIL
     Indication: Renal transplant
  6. TACROLIMUS [Interacting]
     Active Substance: TACROLIMUS
     Indication: Renal transplant
     Dosage: 18 MILLIGRAM DAILY, GRADUALLY INCREASED TO 60MG DAILY
     Route: 065
  7. TACROLIMUS [Interacting]
     Active Substance: TACROLIMUS
     Dosage: 60 MILLIGRAM DAILY
     Route: 065
  8. TACROLIMUS [Interacting]
     Active Substance: TACROLIMUS
     Dosage: UNK, DOSE REDUCED
     Route: 065
  9. CYCLOPHOSPHAMIDE [Suspect]
     Active Substance: CYCLOPHOSPHAMIDE
     Indication: Anti-neutrophil cytoplasmic antibody positive vasculitis
     Dosage: UNK
     Route: 065
  10. CYCLOPHOSPHAMIDE [Suspect]
     Active Substance: CYCLOPHOSPHAMIDE
     Indication: Renal transplant
  11. RITUXIMAB [Suspect]
     Active Substance: RITUXIMAB
     Indication: Anti-neutrophil cytoplasmic antibody positive vasculitis
     Dosage: UNK
     Route: 065
  12. RITUXIMAB [Suspect]
     Active Substance: RITUXIMAB
     Indication: Renal transplant
  13. RIFAMPIN [Interacting]
     Active Substance: RIFAMPIN
     Indication: Latent tuberculosis
     Dosage: UNK
     Route: 065
  14. RIFAMPIN [Interacting]
     Active Substance: RIFAMPIN
     Dosage: 300 MILLIGRAM, BID, TABLET
     Route: 065

REACTIONS (4)
  - Drug interaction [Recovered/Resolved]
  - Drug level decreased [Recovered/Resolved]
  - Cat scratch disease [Recovered/Resolved]
  - Off label use [Unknown]
